FAERS Safety Report 9865899 (Version 1)
Quarter: 2014Q1

REPORT INFORMATION
  Report Type: Spontaneous
  Country: US (occurrence: US)
  Receive Date: 20140203
  Receipt Date: 20140203
  Transmission Date: 20141002
  Serious: No
  Sender: FDA-Public Use
  Company Number: US-ALLERGAN-1312281US

PATIENT
  Age: 37 Year
  Sex: Male

DRUGS (2)
  1. RESTASIS [Suspect]
     Indication: PRODUCT USED FOR UNKNOWN INDICATION
     Dosage: 2 GTT, QHS
     Route: 047
  2. RESTASIS [Suspect]
     Dosage: 2 GTT, BID
     Route: 047

REACTIONS (2)
  - Eye irritation [Unknown]
  - Dry eye [Unknown]
